FAERS Safety Report 18800118 (Version 1)
Quarter: 2021Q1

REPORT INFORMATION
  Report Type: Spontaneous
  Country: US (occurrence: US)
  Receive Date: 20210128
  Receipt Date: 20210128
  Transmission Date: 20210419
  Serious: Yes (Hospitalization)
  Sender: FDA-Public Use
  Company Number: US-NOVOPROD-781705

PATIENT
  Age: 61 Year
  Sex: Male

DRUGS (3)
  1. RYBELSUS [Suspect]
     Active Substance: SEMAGLUTIDE
     Dosage: 14 MG
     Route: 048
     Dates: start: 202101
  2. METFORMIN [Suspect]
     Active Substance: METFORMIN HYDROCHLORIDE
     Indication: PRODUCT USED FOR UNKNOWN INDICATION
     Dosage: UNK
  3. RYBELSUS [Suspect]
     Active Substance: SEMAGLUTIDE
     Indication: PRODUCT USED FOR UNKNOWN INDICATION
     Dosage: 7 MG
     Route: 048
     Dates: start: 20210104, end: 202101

REACTIONS (12)
  - Haematoma [Unknown]
  - Gastrooesophageal reflux disease [Unknown]
  - Temporomandibular joint syndrome [Unknown]
  - Thirst decreased [Unknown]
  - Eructation [Unknown]
  - Constipation [Unknown]
  - Gastroenteritis viral [Unknown]
  - Ulcer [Unknown]
  - Diarrhoea [Unknown]
  - Vomiting [Unknown]
  - Decreased appetite [Unknown]
  - Flatulence [Unknown]

NARRATIVE: CASE EVENT DATE: 202101
